FAERS Safety Report 7220627-1 (Version None)
Quarter: 2011Q1

REPORT INFORMATION
  Report Type: 
  Country: None (occurrence: None)
  Receive Date: 20110111
  Receipt Date: 20110106
  Transmission Date: 20110831
  Serious: Yes (Death, Life-Threatening, Hospitalization)
  Sender: FDA-Public Use
  Company Number: DE-PFIZER INC-2010178375

PATIENT
  Age: 70 Year
  Sex: Male

DRUGS (6)
  1. FLUOROURACIL [Suspect]
     Dosage: 774 MG, EVERY 2 WEEKS
     Route: 040
     Dates: start: 20101102, end: 20101214
  2. FOLINIC ACID [Suspect]
     Indication: COLORECTAL CANCER
     Dosage: 774 MG, EVERY 2 WEEKS
     Route: 042
     Dates: start: 20101102, end: 20101214
  3. BEVACIZUMAB [Suspect]
     Indication: COLORECTAL CANCER
     Dosage: 360 MG, EVERY 2 WEEKS
     Route: 042
     Dates: start: 20101102, end: 20101214
  4. FLUOROURACIL [Suspect]
     Indication: COLORECTAL CANCER
     Dosage: 4464 MG, EVERY 2 WEEKS
     Route: 042
     Dates: start: 20101102, end: 20101214
  5. IRINOTECAN HCL [Suspect]
     Indication: COLORECTAL CANCER
     Dosage: 334 MG, EVERY 2 WEEKS
     Route: 042
     Dates: start: 20101102, end: 20101214
  6. BISOPROLOL [Concomitant]
     Indication: HYPERTENSION
     Dosage: 5 MG, 2X/DAY
     Route: 048

REACTIONS (5)
  - LEUKOPENIA [None]
  - DIARRHOEA [None]
  - DYSPHAGIA [None]
  - PNEUMONIA FUNGAL [None]
  - ATRIAL FIBRILLATION [None]
